FAERS Safety Report 5739156-7 (Version None)
Quarter: 2008Q2

REPORT INFORMATION
  Report Type: 
  Country: None (occurrence: None)
  Receive Date: 20080515
  Receipt Date: 20080512
  Transmission Date: 20081010
  Serious: Yes (Life-Threatening, Hospitalization, Disabling)
  Sender: FDA-Public Use
  Company Number: B0511427A

PATIENT
  Age: 32 Year
  Sex: Female
  Weight: 75 kg

DRUGS (3)
  1. ARIXTRA [Suspect]
     Indication: THROMBOSIS PROPHYLAXIS
     Dosage: 2.5MG PER DAY
     Route: 058
     Dates: start: 20071019, end: 20071102
  2. UNASYN [Concomitant]
     Indication: POST PROCEDURAL INFECTION
     Dosage: 3G PER DAY
     Dates: start: 20071022, end: 20071028
  3. SULPERAZON [Concomitant]
     Indication: POST PROCEDURAL INFECTION
     Dosage: 2G PER DAY
     Dates: start: 20071029, end: 20071106

REACTIONS (4)
  - DEEP VEIN THROMBOSIS [None]
  - OEDEMA PERIPHERAL [None]
  - PAIN IN EXTREMITY [None]
  - PYREXIA [None]
